FAERS Safety Report 5951585-5 (Version None)
Quarter: 2008Q4

REPORT INFORMATION
  Report Type: 
  Country: None (occurrence: None)
  Receive Date: 20081113
  Receipt Date: 20081104
  Transmission Date: 20090506
  Serious: Yes (Disabling)
  Sender: FDA-Public Use
  Company Number: PHHY2008GB27859

PATIENT
  Age: 65 Year
  Sex: Female
  Weight: 62 kg

DRUGS (5)
  1. ALISKIREN [Suspect]
     Indication: HYPERTENSION
     Dosage: 150 MG, QD
     Route: 048
     Dates: start: 20081009
  2. CO-AMILOFRUSE [Interacting]
     Dosage: UNK
     Dates: start: 20020327
  3. ASPIRIN [Concomitant]
     Indication: ANGINA PECTORIS
     Dosage: 75 MG DAILY
     Dates: start: 20040517
  4. ATORVASTATIN CALCIUM [Concomitant]
     Indication: ANGINA PECTORIS
     Dosage: 20 MG DAILY
     Route: 048
     Dates: start: 20040605
  5. DOXAZOSIN MESYLATE [Concomitant]
     Indication: HYPERTENSION
     Dosage: 4 MG DAILY
     Route: 048
     Dates: start: 20020313

REACTIONS (3)
  - DRUG INTERACTION [None]
  - HYPOTENSION [None]
  - THIRST [None]
